FAERS Safety Report 16423052 (Version 1)
Quarter: 2019Q2

REPORT INFORMATION
  Report Type: Spontaneous
  Country: FR (occurrence: FR)
  Receive Date: 20190612
  Receipt Date: 20190612
  Transmission Date: 20190711
  Serious: Yes (Other)
  Sender: FDA-Public Use
  Company Number: FR-ANIPHARMA-2019-FR-000132

PATIENT
  Age: 81 Year
  Sex: Male

DRUGS (6)
  1. PREVISCAN [Concomitant]
     Dosage: UNK
     Route: 065
  2. FLECAINE [Suspect]
     Active Substance: FLECAINIDE
     Dosage: UNK
     Route: 065
  3. AMIODARONE [Suspect]
     Active Substance: AMIODARONE
     Dosage: UNK UNK, 5/WEEK
     Route: 048
     Dates: start: 20181224, end: 20190319
  4. CANDESARTAN. [Suspect]
     Active Substance: CANDESARTAN
     Indication: PRODUCT USED FOR UNKNOWN INDICATION
     Dosage: UNK
     Route: 048
  5. BISOPROLOL [Concomitant]
     Active Substance: BISOPROLOL
     Dosage: UNK
     Route: 065
  6. CORDARONE [Suspect]
     Active Substance: AMIODARONE HYDROCHLORIDE
     Dosage: 400 MG QD
     Route: 048
     Dates: start: 20181214, end: 20190319

REACTIONS (2)
  - Thyroid disorder [Unknown]
  - Cardiac disorder [Unknown]

NARRATIVE: CASE EVENT DATE: 20190319
